FAERS Safety Report 5628069-7 (Version None)
Quarter: 2008Q1

REPORT INFORMATION
  Report Type: 
  Country: None (occurrence: None)
  Receive Date: 20080215
  Receipt Date: 20080208
  Transmission Date: 20080703
  Serious: Yes (Other)
  Sender: FDA-Public Use
  Company Number: US-ELI_LILLY_AND_COMPANY-US200802002285

PATIENT
  Sex: Male

DRUGS (1)
  1. HUMATROPE [Suspect]
     Dosage: 0.8 MG, UNKNOWN
     Dates: start: 20000701

REACTIONS (2)
  - ARNOLD-CHIARI MALFORMATION [None]
  - SYRINGOMYELIA [None]
